FAERS Safety Report 16833200 (Version 1)
Quarter: 2019Q4

REPORT INFORMATION
  Report Type: Spontaneous
  Country: US (occurrence: US)
  Receive Date: 20190920
  Receipt Date: 20190920
  Transmission Date: 20200122
  Serious: Yes (Other)
  Sender: FDA-Public Use
  Company Number: None

PATIENT
  Age: 55 Year
  Sex: Female
  Weight: 58.5 kg

DRUGS (1)
  1. MAYZENT [Suspect]
     Active Substance: SIPONIMOD
     Indication: MULTIPLE SCLEROSIS
     Dosage: ?          QUANTITY:1 TABLET(S);?
     Route: 048
     Dates: start: 20190801, end: 20190906

REACTIONS (8)
  - Dizziness [None]
  - Lethargy [None]
  - Headache [None]
  - White blood cell count decreased [None]
  - Lymphocyte count decreased [None]
  - Pain [None]
  - Decreased appetite [None]
  - Confusional state [None]

NARRATIVE: CASE EVENT DATE: 20190906
